FAERS Safety Report 5699528-6 (Version None)
Quarter: 2008Q2

REPORT INFORMATION
  Report Type: 
  Country: None (occurrence: None)
  Receive Date: 20080410
  Receipt Date: 20080331
  Transmission Date: 20081010
  Serious: Yes (Other)
  Sender: FDA-Public Use
  Company Number: US-JNJFOC-20080400433

PATIENT
  Sex: Female
  Weight: 63.5 kg

DRUGS (3)
  1. REMICADE [Suspect]
     Dosage: THIRD INFUSION (6 WEEKS AFTER SECOND INFUSION)
     Route: 042
  2. REMICADE [Suspect]
     Dosage: SECOND INFUSION, AUG-2001 OR SEP-2001
     Route: 042
  3. REMICADE [Suspect]
     Indication: CROHN'S DISEASE
     Dosage: INITIAL INFUSION IN THE FALL OF 2000
     Route: 042

REACTIONS (4)
  - CONCUSSION [None]
  - DRUG INEFFECTIVE [None]
  - LOSS OF CONSCIOUSNESS [None]
  - ROAD TRAFFIC ACCIDENT [None]
